FAERS Safety Report 19700426 (Version 5)
Quarter: 2021Q4

REPORT INFORMATION
  Report Type: Spontaneous
  Country: BR (occurrence: BR)
  Receive Date: 20210813
  Receipt Date: 20211101
  Transmission Date: 20220304
  Serious: Yes (Hospitalization, Other)
  Sender: FDA-Public Use
  Company Number: BR-ELI_LILLY_AND_COMPANY-BR202108003127

PATIENT
  Age: 48 Year
  Sex: Male

DRUGS (8)
  1. TALTZ [Suspect]
     Active Substance: IXEKIZUMAB
     Indication: Ankylosing spondylitis
     Dosage: 80 MG, UNKNOWN
     Route: 065
     Dates: start: 202107
  2. PREDNISOLONE [Concomitant]
     Active Substance: PREDNISOLONE
     Dosage: UNK, UNKNOWN
  3. ATENOLOL [Concomitant]
     Active Substance: ATENOLOL
     Dosage: UNK, UNKNOWN
  4. ETNA [CYTIDINE PHOSPHATE SODIUM;HYDROXOCOBALA [Concomitant]
     Dosage: UNK, UNKNOWN
  5. MECLIN [Concomitant]
     Dosage: UNK, UNKNOWN
  6. BETAHISTINE HYDROCHLORIDE [Concomitant]
     Active Substance: BETAHISTINE HYDROCHLORIDE
     Dosage: UNK, UNKNOWN
  7. METFORMIN HYDROCHLORIDE [Concomitant]
     Active Substance: METFORMIN HYDROCHLORIDE
     Dosage: UNK, UNKNOWN
  8. MACRODANTIN [Concomitant]
     Active Substance: NITROFURANTOIN
     Dosage: UNK, UNKNOWN

REACTIONS (3)
  - Deep vein thrombosis [Recovered/Resolved]
  - Cellulitis [Recovered/Resolved]
  - Immunosuppression [Unknown]

NARRATIVE: CASE EVENT DATE: 20210801
